FAERS Safety Report 11540011 (Version 1)
Quarter: 2015Q3

REPORT INFORMATION
  Report Type: Spontaneous
  Country: IT (occurrence: IT)
  Receive Date: 20150923
  Receipt Date: 20150923
  Transmission Date: 20151125
  Serious: Yes (Death, Hospitalization, Other)
  Sender: FDA-Public Use
  Company Number: IT-BRISTOL-MYERS SQUIBB COMPANY-BMS-2015-060991

PATIENT
  Age: 77 Year
  Sex: Male
  Weight: 66 kg

DRUGS (1)
  1. YERVOY [Suspect]
     Active Substance: IPILIMUMAB
     Indication: MALIGNANT MELANOMA
     Dosage: 213 MG, QCYCLE
     Route: 040
     Dates: start: 20150625, end: 20150806

REACTIONS (10)
  - Laparotomy [Fatal]
  - Abdominal pain [Fatal]
  - Colon injury [Fatal]
  - Intestinal perforation [Fatal]
  - Diarrhoea [Fatal]
  - Fall [Unknown]
  - Rectal haemorrhage [Fatal]
  - Abdominal rigidity [Fatal]
  - Aphasia [Unknown]
  - Gastrointestinal necrosis [Fatal]

NARRATIVE: CASE EVENT DATE: 20150819
